FAERS Safety Report 5595496-6 (Version None)
Quarter: 2008Q1

REPORT INFORMATION
  Report Type: 
  Country: None (occurrence: None)
  Receive Date: 20080118
  Receipt Date: 20080116
  Transmission Date: 20080703
  Serious: Yes (Hospitalization)
  Sender: FDA-Public Use
  Company Number: US-JNJFOC-20080103682

PATIENT
  Age: 41 Year
  Sex: Male

DRUGS (3)
  1. IBUPROFEN [Suspect]
     Indication: MALAISE
     Route: 048
  2. IBUPROFEN [Suspect]
     Indication: CHILLS
     Route: 048
  3. ACETAMINOPHEN/DEXTROMETHORPHAN/PSEUDOEPHEDRINE [Concomitant]
     Indication: DRUG USE FOR UNKNOWN INDICATION

REACTIONS (3)
  - ABDOMINAL DISCOMFORT [None]
  - RENAL INJURY [None]
  - RENAL TUBULAR NECROSIS [None]
